FAERS Safety Report 10455504 (Version 1)
Quarter: 2014Q3

REPORT INFORMATION
  Report Type: Spontaneous
  Country: US (occurrence: None)
  Receive Date: 20140912
  Receipt Date: 20140912
  Transmission Date: 20150326
  Serious: Yes (Death)
  Sender: FDA-Public Use
  Company Number: US-H14001-14-00512

PATIENT
  Age: 65 Year
  Sex: Male

DRUGS (7)
  1. ERGOCALCIFEROL (ERGOCALCIFEROL) (UNKNOWN) (ERGOCALCIFEROL) [Suspect]
     Active Substance: ERGOCALCIFEROL
     Indication: VITAMIN D DEFICIENCY
     Dosage: (50000 IU, 2 IN 1 WK), UNKNOWN STOPPED  THERAPY
  2. WARFARIN (WARFARIN)(UNKNOWN)(WARFARIN) [Suspect]
     Active Substance: WARFARIN
     Indication: ATRIAL FIBRILLATION
     Dosage: (UNKNOWN), UNKNOWN - STOPPED THERAPY
  3. PREDNISONE. [Concomitant]
     Active Substance: PREDNISONE
  4. CALCIUM CARBONATE (CALCIUM CARBONATE) (UNKNOWN) (CALCIUM CARBONATE) [Suspect]
     Active Substance: CALCIUM CARBONATE
     Indication: HYPOCALCAEMIA
     Dosage: 1500 MG (500 MG, 3 IN 1 D), UNKNOWN
  5. IRON DEXTRAN (IRON DEXTRAN) (UNKNOWN) (IRON DEXTRAN) [Suspect]
     Active Substance: IRON DEXTRAN
     Indication: IRON DEFICIENCY ANAEMIA
     Dosage: 14.2857 MG (100 MG, 1 IN 1 D) STOPPED THERAPY
  6. DOXERCALCIFEROL (DOXERCALCIFEROL) (UNKNOWN) (DOXERCALCIFEROL) [Suspect]
     Active Substance: DOXERCALCIFEROL
     Indication: VITAMIN D DEFICIENCY
     Dosage: 0.25 MCG, UNKNOWN  STOPPED THERAPY
  7. CEFTRIAXONE. [Concomitant]
     Active Substance: CEFTRIAXONE

REACTIONS (11)
  - Oedema peripheral [None]
  - Hypotension [None]
  - Calciphylaxis [None]
  - Electrocardiogram QT prolonged [None]
  - Gastrointestinal haemorrhage [None]
  - Renal failure acute [None]
  - Dermatitis bullous [None]
  - Delirium [None]
  - Tetany [None]
  - Streptococcal bacteraemia [None]
  - Skin necrosis [None]
